APPROVED DRUG PRODUCT: IMODIUM A-D
Active Ingredient: LOPERAMIDE HYDROCHLORIDE
Strength: 2MG
Dosage Form/Route: TABLET;ORAL
Application: N019860 | Product #001
Applicant: KENVUE BRANDS LLC
Approved: Nov 22, 1989 | RLD: Yes | RS: Yes | Type: OTC